FAERS Safety Report 6385284-5 (Version None)
Quarter: 2009Q4

REPORT INFORMATION
  Report Type: 
  Country: None (occurrence: None)
  Receive Date: 20091002
  Receipt Date: 20080815
  Transmission Date: 20100525
  Serious: No
  Sender: FDA-Public Use
  Company Number: US-ASTRAZENECA-2008UW16712

PATIENT
  Age: 53 Year
  Sex: Female
  Weight: 77.1 kg

DRUGS (2)
  1. ARIMIDEX [Suspect]
     Indication: BREAST CANCER FEMALE
     Route: 048
  2. AMITRIPTYLINE [Concomitant]

REACTIONS (4)
  - EYE IRRITATION [None]
  - PAIN [None]
  - SKIN DISORDER [None]
  - VISION BLURRED [None]
